FAERS Safety Report 4916179-9 (Version None)
Quarter: 2006Q1

REPORT INFORMATION
  Report Type: 
  Country: None (occurrence: None)
  Receive Date: 20060217
  Receipt Date: 20051004
  Transmission Date: 20060701
  Serious: Yes (Death, Hospitalization)
  Sender: FDA-Public Use
  Company Number: US-MERCK-0510USA03901

PATIENT
  Age: 52 Year
  Sex: Male
  Weight: 82 kg

DRUGS (5)
  1. VIOXX [Suspect]
     Indication: BACK PAIN
     Route: 048
     Dates: start: 20010101, end: 20040119
  2. NEURONTIN [Concomitant]
     Indication: PAIN
     Route: 065
     Dates: start: 20010101, end: 20040119
  3. AMBIEN [Concomitant]
     Indication: INSOMNIA
     Route: 065
  4. DURAGESIC-100 [Concomitant]
     Indication: PAIN
     Route: 065
     Dates: start: 20030101, end: 20040116
  5. SOMA [Concomitant]
     Indication: PAIN
     Route: 065
     Dates: start: 19990101, end: 20040119

REACTIONS (3)
  - BACK PAIN [None]
  - MYOCARDIAL INFARCTION [None]
  - PULMONARY EMBOLISM [None]
